FAERS Safety Report 14946228 (Version 1)
Quarter: 2018Q2

REPORT INFORMATION
  Report Type: Report from Study
  Country: CA (occurrence: CA)
  Receive Date: 20180529
  Receipt Date: 20180529
  Transmission Date: 20180711
  Serious: Yes (Other)
  Sender: FDA-Public Use
  Company Number: PHHY2018CA006959

PATIENT
  Age: 64 Year
  Sex: Male

DRUGS (2)
  1. MEKINIST [Suspect]
     Active Substance: TRAMETINIB DIMETHYL SULFOXIDE
     Indication: METASTATIC MALIGNANT MELANOMA
     Dosage: 2 MG, UNK
     Route: 048
     Dates: start: 20170530
  2. TAFINLAR [Suspect]
     Active Substance: DABRAFENIB MESYLATE
     Indication: METASTATIC MALIGNANT MELANOMA
     Dosage: 300 MG, UNK
     Route: 048
     Dates: start: 20170530

REACTIONS (9)
  - Meningioma [Recovering/Resolving]
  - Hepatic lesion [Unknown]
  - Pleural fibrosis [Unknown]
  - Aortic arteriosclerosis [Unknown]
  - Gynaecomastia [Unknown]
  - Renal cyst [Unknown]
  - Thyroid atrophy [Unknown]
  - Hiatus hernia [Unknown]
  - Prostatomegaly [Unknown]

NARRATIVE: CASE EVENT DATE: 20180504
